FAERS Safety Report 16173626 (Version 1)
Quarter: 2019Q2

REPORT INFORMATION
  Report Type: Spontaneous
  Country: CA (occurrence: CA)
  Receive Date: 20190409
  Receipt Date: 20190409
  Transmission Date: 20190711
  Serious: Yes (Other)
  Sender: FDA-Public Use
  Company Number: CA-TEVA-2019-CA-1035391

PATIENT
  Age: 71 Year
  Sex: Female

DRUGS (6)
  1. HYDROXYCHLOROQUINE SULFATE. [Concomitant]
     Active Substance: HYDROXYCHLOROQUINE SULFATE
  2. PENTASA [Concomitant]
     Active Substance: MESALAMINE
  3. SIMPONI [Concomitant]
     Active Substance: GOLIMUMAB
  4. MEZAVANT ALSO KNOWN AS MESALAMINE [Concomitant]
     Active Substance: MESALAMINE
  5. METHOTREXATE. [Suspect]
     Active Substance: METHOTREXATE
     Indication: PRODUCT USED FOR UNKNOWN INDICATION
     Route: 065
  6. PREDNISONE. [Concomitant]
     Active Substance: PREDNISONE

REACTIONS (2)
  - Colitis ulcerative [Unknown]
  - Rheumatoid arthritis [Unknown]
